FAERS Safety Report 26187310 (Version 1)
Quarter: 2025Q4

REPORT INFORMATION
  Report Type: Spontaneous
  Country: US (occurrence: None)
  Receive Date: 20251222
  Receipt Date: 20251222
  Transmission Date: 20260117
  Serious: Yes (Hospitalization)
  Sender: FDA-CTU
  Company Number: None

PATIENT
  Sex: Female
  Weight: 96.3 kg

DRUGS (2)
  1. WINREVAIR [Suspect]
     Active Substance: SOTATERCEPT-CSRK
     Indication: Pulmonary arterial hypertension
     Dosage: OTHER FREQUENCY : EVERY 3 WEEKS;
     Route: 058
     Dates: start: 20250618
  2. TYVASO DPI [Suspect]
     Active Substance: TREPROSTINIL

REACTIONS (2)
  - Respiratory disorder [None]
  - Wrong technique in device usage process [None]
